FAERS Safety Report 7145554-X (Version None)
Quarter: 2010Q4

REPORT INFORMATION
  Report Type: 
  Country: None (occurrence: None)
  Receive Date: 20101123
  Receipt Date: 20101111
  Transmission Date: 20110411
  Serious: Yes (Life-Threatening, Disabling, Other)
  Sender: FDA-Public Use
  Company Number: 2010SP059735

PATIENT
  Age: 67 Year
  Sex: Female

DRUGS (8)
  1. REMERON [Suspect]
     Indication: SLEEP DISORDER
     Dosage: 7.5 MG;QD;PO
     Route: 048
  2. IMITREX [Suspect]
     Indication: HEADACHE
     Dosage: 25 MG;PRN;PO ; 25 MG;QD;PO
     Route: 048
     Dates: start: 20100713
  3. IMITREX [Suspect]
     Indication: HEADACHE
     Dosage: 25 MG;PRN;PO ; 25 MG;QD;PO
     Route: 048
     Dates: start: 20100823
  4. LEXAPRO [Suspect]
     Indication: DEPRESSION
     Dosage: 20 MG;QD;PO
     Route: 048
  5. TRAZODONE HCL [Suspect]
     Indication: DEPRESSION
     Dosage: 50 MG;QD;PO
     Route: 048
     Dates: start: 20100713, end: 20100823
  6. TRAZODONE HCL [Suspect]
     Indication: SLEEP DISORDER
     Dosage: 50 MG;QD;PO
     Route: 048
     Dates: start: 20100713, end: 20100823
  7. RISPERDAL [Suspect]
     Indication: AGITATION
     Dosage: .25 MG;PO
     Route: 048
  8. KEPPRA [Concomitant]

REACTIONS (6)
  - ACTIVITIES OF DAILY LIVING IMPAIRED [None]
  - COORDINATION ABNORMAL [None]
  - DRUG ADMINISTRATION ERROR [None]
  - DRUG PRESCRIBING ERROR [None]
  - SERUM SEROTONIN INCREASED [None]
  - SPEECH DISORDER [None]
